FAERS Safety Report 16464791 (Version 4)
Quarter: 2019Q2

REPORT INFORMATION
  Report Type: Spontaneous
  Country: AU (occurrence: AU)
  Receive Date: 20190621
  Receipt Date: 20190626
  Transmission Date: 20190711
  Serious: Yes (Other)
  Sender: FDA-Public Use
  Company Number: PHHY2019AU142407

PATIENT
  Age: 56 Year
  Sex: Female

DRUGS (1)
  1. CICLOSPORIN [Suspect]
     Active Substance: CYCLOSPORINE
     Indication: APLASTIC ANAEMIA
     Dosage: UNK
     Route: 065

REACTIONS (6)
  - Hypertension [Unknown]
  - Aplastic anaemia [Unknown]
  - Dependence [Unknown]
  - Therapeutic response decreased [Unknown]
  - Hirsutism [Unknown]
  - Product use in unapproved indication [Unknown]
